FAERS Safety Report 6651595-9 (Version None)
Quarter: 2010Q1

REPORT INFORMATION
  Report Type: 
  Country: None (occurrence: None)
  Receive Date: 20100325
  Receipt Date: 20100318
  Transmission Date: 20100710
  Serious: Yes (Hospitalization)
  Sender: FDA-Public Use
  Company Number: US-JNJFOC-20100306392

PATIENT
  Sex: Female
  Weight: 95.26 kg

DRUGS (5)
  1. USTEKINUMAB [Suspect]
     Indication: PSORIASIS
     Route: 058
  2. SIMPONI [Suspect]
     Indication: PSORIASIS
     Route: 058
  3. REMICADE [Suspect]
     Indication: PSORIASIS
     Route: 042
  4. HUMIRA [Concomitant]
     Indication: PSORIASIS
  5. ENBREL [Concomitant]
     Indication: PSORIASIS

REACTIONS (1)
  - CELLULITIS [None]
